FAERS Safety Report 9536122 (Version 1)
Quarter: 2013Q2

REPORT INFORMATION
  Report Type: Spontaneous
  Country: US (occurrence: None)
  Receive Date: 20130507
  Receipt Date: 20130507
  Transmission Date: 20140414
  Serious: No
  Sender: FDA-Public Use
  Company Number: PHEH2013US001072

PATIENT
  Age: 69 Year
  Sex: Female
  Weight: 71.7 kg

DRUGS (9)
  1. AFINITOR (RAD) [Suspect]
     Route: 048
  2. ATENOLOL (ATENOLOL) [Concomitant]
  3. SIMVASTATIN (SIMVASTATIN) [Concomitant]
  4. ASPIRIN (ACETYLSALICYLIC ACID) [Concomitant]
  5. CALCIUM D (CALCIUM CARBONATE, COLECALCIFEROL) [Concomitant]
  6. VITAMIN D (ERGOCALCOFEROL) [Concomitant]
  7. EXEMESTANE (EXEMESTANE) [Concomitant]
  8. ZOFRAN (ONDANSETRON HYDROCHLORIDE) [Concomitant]
  9. LOMOTIL (ATROPINE SULFATE, DIPHENOXYLATE HYDROCHLORIEDE) [Concomitant]

REACTIONS (6)
  - Stomatitis [None]
  - Dysgeusia [None]
  - Blood glucose increased [None]
  - Diarrhoea [None]
  - Nausea [None]
  - Vomiting [None]
